FAERS Safety Report 4558566-7 (Version None)
Quarter: 2005Q1

REPORT INFORMATION
  Report Type: 
  Country: None (occurrence: None)
  Receive Date: 20050121
  Receipt Date: 20041104
  Transmission Date: 20050727
  Serious: Yes (Hospitalization, Other)
  Sender: FDA-Public Use
  Company Number: GB-BRISTOL-MYERS SQUIBB COMPANY-12757480

PATIENT
  Age: 37 Year
  Sex: Male
  Weight: 67 kg

DRUGS (4)
  1. REYATAZ [Suspect]
     Route: 048
     Dates: start: 20040420, end: 20041028
  2. SAQUINAVIR [Suspect]
     Dates: start: 20040617, end: 20041028
  3. RITONAVIR [Concomitant]
     Indication: HIV INFECTION
     Dates: start: 20040617, end: 20041028
  4. CREON [Concomitant]
     Indication: PANCREATIC INSUFFICIENCY
     Dosage: 75000 UNITS
     Dates: start: 20040724

REACTIONS (8)
  - BILIARY DILATATION [None]
  - DIARRHOEA [None]
  - HEPATIC FIBROSIS [None]
  - HEPATITIS [None]
  - PORTAL VEIN THROMBOSIS [None]
  - PYREXIA [None]
  - VARICES OESOPHAGEAL [None]
  - VOMITING [None]
